FAERS Safety Report 5474902-1 (Version None)
Quarter: 2007Q4

REPORT INFORMATION
  Report Type: 
  Country: None (occurrence: None)
  Receive Date: 20071002
  Receipt Date: 20070911
  Transmission Date: 20080405
  Serious: Yes (Hospitalization)
  Sender: FDA-Public Use
  Company Number: US-GENENTECH-247575

PATIENT
  Sex: Male
  Weight: 120.6 kg

DRUGS (7)
  1. BEVACIZUMAB [Suspect]
     Indication: RENAL CELL CARCINOMA STAGE UNSPECIFIED
     Dosage: 1196 MG, Q2W
     Route: 042
     Dates: start: 20050927
  2. EVEROLIMUS [Suspect]
     Indication: RENAL CELL CARCINOMA STAGE UNSPECIFIED
     Dosage: 10 MG, QD
     Route: 048
     Dates: start: 20050927
  3. PRAVACHOL [Concomitant]
     Indication: DRUG USE FOR UNKNOWN INDICATION
     Dosage: 20 MG, QHS
     Route: 048
  4. NYSTATIN [Concomitant]
     Indication: DRUG USE FOR UNKNOWN INDICATION
     Dosage: 100000 UNK, BID
  5. MIRAPEX [Concomitant]
     Indication: SLEEP APNOEA SYNDROME
     Dosage: 0.25 MG, QD
     Route: 048
  6. BENADRYL [Concomitant]
     Indication: DRUG USE FOR UNKNOWN INDICATION
     Dosage: 25 MG, PRN
  7. ADVIL LIQUI-GELS [Concomitant]
     Indication: DRUG USE FOR UNKNOWN INDICATION
     Dosage: 400 MG, PRN

REACTIONS (1)
  - DRUG ERUPTION [None]
